FAERS Safety Report 25460640 (Version 1)
Quarter: 2025Q2

REPORT INFORMATION
  Report Type: Spontaneous
  Country: US (occurrence: None)
  Receive Date: 20250619
  Receipt Date: 20250619
  Transmission Date: 20250717
  Serious: Yes (Other)
  Sender: FDA-CTU
  Company Number: None

PATIENT
  Sex: Female

DRUGS (11)
  1. ENBREL [Suspect]
     Active Substance: ETANERCEPT
     Indication: Rheumatoid arthritis
     Dosage: FREQUENCY : WEEKLY;?
     Route: 058
     Dates: start: 20210420
  2. ADDERALL [Concomitant]
     Active Substance: AMPHETAMINE ASPARTATE\AMPHETAMINE SULFATE\DEXTROAMPHETAMINE SACCHARATE\DEXTROAMPHETAMINE SULFATE
  3. AMBIEN [Concomitant]
     Active Substance: ZOLPIDEM TARTRATE
  4. CHLOROPHYLL [Concomitant]
  5. CYANOCOBALAM INJ [Concomitant]
  6. FEXOFENADINE HYDROCHLORIDE [Concomitant]
     Active Substance: FEXOFENADINE HYDROCHLORIDE
  7. FISH OIL [Concomitant]
     Active Substance: FISH OIL
  8. FOLIC ACID [Concomitant]
     Active Substance: FOLIC ACID
  9. GINGER [Concomitant]
     Active Substance: GINGER
  10. KETOTIFEN POW FUMARATE [Concomitant]
  11. KP VITAMIN D [Concomitant]

REACTIONS (5)
  - Drug ineffective [None]
  - Loss of personal independence in daily activities [None]
  - Pain [None]
  - Surgery [None]
  - Intentional dose omission [None]
